FAERS Safety Report 9115377 (Version 1)
Quarter: 2013Q1

REPORT INFORMATION
  Report Type: Spontaneous
  Country: US (occurrence: None)
  Receive Date: 20130221
  Receipt Date: 20130221
  Transmission Date: 20140127
  Serious: Yes (Other)
  Sender: FDA-Public Use
  Company Number: None

PATIENT
  Age: 80 Year
  Sex: Male
  Weight: 86.18 kg

DRUGS (1)
  1. LEVOFLOXACIN [Suspect]
     Indication: BRONCHITIS
     Dosage: 1 TAB 1 DAILY 047 ROUTE
     Dates: start: 20121207, end: 20121214

REACTIONS (5)
  - Muscular weakness [None]
  - Pain in extremity [None]
  - Weight bearing difficulty [None]
  - Hypoaesthesia [None]
  - Tendonitis [None]
